FAERS Safety Report 8040780-X (Version None)
Quarter: 2012Q1

REPORT INFORMATION
  Report Type: 
  Country: None (occurrence: None)
  Receive Date: 20120112
  Receipt Date: 20120103
  Transmission Date: 20120608
  Serious: No
  Sender: FDA-Public Use
  Company Number: US-AMGEN-USASP2011066876

PATIENT
  Age: 11 Year
  Sex: Female
  Weight: 42 kg

DRUGS (4)
  1. INDOCINE [Concomitant]
     Indication: JUVENILE ARTHRITIS
     Dosage: 25 MG, TID
     Route: 048
     Dates: start: 20111001
  2. ENBREL [Suspect]
     Indication: JUVENILE ARTHRITIS
     Dosage: 25 MG, QWK
     Route: 058
     Dates: start: 20111209
  3. MELATONIN [Concomitant]
     Dosage: 3 MG, QHS
  4. MTX                                /00113801/ [Concomitant]
     Indication: JUVENILE ARTHRITIS
     Dosage: 25 MG, QWK
     Route: 058
     Dates: start: 20111001

REACTIONS (9)
  - HEADACHE [None]
  - SYNCOPE [None]
  - DECREASED APPETITE [None]
  - ARTHRALGIA [None]
  - TINNITUS [None]
  - PALLOR [None]
  - STOMATITIS [None]
  - MALAISE [None]
  - NAUSEA [None]
